FAERS Safety Report 9000958 (Version 1)
Quarter: 2012Q4

REPORT INFORMATION
  Report Type: Spontaneous
  Country: IT (occurrence: None)
  Receive Date: 20121226
  Receipt Date: 20121226
  Transmission Date: 20130627
  Serious: Yes (Hospitalization, Other)
  Sender: FDA-Public Use
  Company Number: AUR-APL-2012-05507

PATIENT
  Age: 37 Year
  Sex: Female
  Weight: 46 kg

DRUGS (4)
  1. LEVOFLOXACIN (LEVOFLOXACIN) [Suspect]
     Indication: DRUG USE FOR UNKNOWN INDICATION
     Dosage: 1 D
     Route: 048
     Dates: start: 20120710, end: 20120713
  2. PARACETAMOL (PARACETAMOL) [Concomitant]
  3. IBUPROFEN (IBUPROFEN) [Concomitant]
  4. ARNICA (ARNICA MONTANA) [Concomitant]

REACTIONS (3)
  - Fatigue [None]
  - Palpitations [None]
  - Asthenia [None]
